FAERS Safety Report 13752269 (Version 1)
Quarter: 2017Q3

REPORT INFORMATION
  Report Type: Spontaneous
  Country: US (occurrence: US)
  Receive Date: 20170713
  Receipt Date: 20170713
  Transmission Date: 20171127
  Serious: No
  Sender: FDA-Public Use
  Company Number: US-JAZZ-2017-US-006190

PATIENT
  Age: 23 Year
  Sex: Female

DRUGS (5)
  1. MODAFINIL. [Concomitant]
     Active Substance: MODAFINIL
  2. ATENOLOL. [Concomitant]
     Active Substance: ATENOLOL
  3. FLORINEF ACETATE [Concomitant]
     Active Substance: FLUDROCORTISONE ACETATE
  4. XYREM [Suspect]
     Active Substance: SODIUM OXYBATE
     Indication: NARCOLEPSY
     Dosage: 2.25 G, BID
     Route: 048
     Dates: start: 20170506
  5. SERTRALINE [Concomitant]
     Active Substance: SERTRALINE HYDROCHLORIDE

REACTIONS (3)
  - Bruxism [Recovered/Resolved]
  - Nausea [Not Recovered/Not Resolved]
  - Myalgia [Recovered/Resolved]

NARRATIVE: CASE EVENT DATE: 20170507
